FAERS Safety Report 18492316 (Version 2)
Quarter: 2021Q1

REPORT INFORMATION
  Report Type: Spontaneous
  Country: US (occurrence: US)
  Receive Date: 20201111
  Receipt Date: 20210222
  Transmission Date: 20210419
  Serious: Yes (Other)
  Sender: FDA-Public Use
  Company Number: US-BAYER-2020-244295

PATIENT
  Age: 30 Year
  Sex: Female

DRUGS (1)
  1. MIRENA [Suspect]
     Active Substance: LEVONORGESTREL
     Indication: CONTRACEPTION
     Dosage: 20?G PER DAY, CONTINUOUSLY
     Route: 015
     Dates: start: 20200824

REACTIONS (2)
  - Genital haemorrhage [None]
  - Device expulsion [Recovered/Resolved]

NARRATIVE: CASE EVENT DATE: 20201104
